FAERS Safety Report 10977610 (Version 1)
Quarter: 2015Q1

REPORT INFORMATION
  Report Type: Spontaneous
  Country: CH (occurrence: None)
  Receive Date: 20150331
  Receipt Date: 20150331
  Transmission Date: 20150721
  Serious: Yes (Other)
  Sender: FDA-Public Use
  Company Number: 20150187

PATIENT
  Age: 16 Year
  Sex: Female

DRUGS (1)
  1. FERINJECT [Suspect]
     Active Substance: FERRIC CARBOXYMALTOSE
     Indication: IRON DEFICIENCY ANAEMIA
     Dosage: 500 MG, 1 IN 1 TOTAL
     Route: 041
     Dates: start: 20141219, end: 20141219

REACTIONS (2)
  - Urticaria [None]
  - Face oedema [None]

NARRATIVE: CASE EVENT DATE: 20141219
